FAERS Safety Report 10417103 (Version 2)
Quarter: 2014Q4

REPORT INFORMATION
  Report Type: Report from Study
  Country: AU (occurrence: AU)
  Receive Date: 20140828
  Receipt Date: 20141021
  Transmission Date: 20150528
  Serious: Yes (Hospitalization)
  Sender: FDA-Public Use
  Company Number: AU-EXELIXIS-XL18414004667

PATIENT
  Age: 63 Year
  Sex: Male
  Weight: 74 kg

DRUGS (24)
  1. CARTIA XT [Concomitant]
     Active Substance: DILTIAZEM HYDROCHLORIDE
  2. CITRACAL [Concomitant]
     Active Substance: CALCIUM CITRATE
  3. CRESTOR [Concomitant]
     Active Substance: ROSUVASTATIN CALCIUM
  4. SOTALOL HYDROCHLORIDE. [Concomitant]
     Active Substance: SOTALOL HYDROCHLORIDE
  5. FISH OIL [Concomitant]
     Active Substance: FISH OIL
  6. PANADOL [Concomitant]
     Active Substance: ACETAMINOPHEN
  7. NAPROSYN [Concomitant]
     Active Substance: NAPROXEN
  8. PREDNISONE. [Concomitant]
     Active Substance: PREDNISONE
  9. OXYCONTIN [Concomitant]
     Active Substance: OXYCODONE HYDROCHLORIDE
  10. DIFFLAM [Concomitant]
     Active Substance: BENZYDAMINE HYDROCHLORIDE
  11. XL184 [Suspect]
     Active Substance: CABOZANTINIB
     Indication: PROSTATE CANCER
     Dosage: 60 MG, QD
     Route: 048
     Dates: start: 20130830
  12. ENDONE [Concomitant]
     Active Substance: OXYCODONE HYDROCHLORIDE
  13. GLYCERYL TRINITRATE [Concomitant]
     Active Substance: NITROGLYCERIN
  14. DENOSUMAB [Concomitant]
     Active Substance: DENOSUMAB
  15. GOSERELIN [Concomitant]
     Active Substance: GOSERELIN
  16. GAVISCON [Concomitant]
     Active Substance: ALUMINUM HYDROXIDE\MAGNESIUM CARBONATE
  17. XL184 [Suspect]
     Active Substance: CABOZANTINIB
     Dosage: 5 MG, QD
     Route: 048
     Dates: end: 20140924
  18. CENTRUM [Concomitant]
     Active Substance: VITAMINS
  19. XL184 [Suspect]
     Active Substance: CABOZANTINIB
     Indication: PROSTATE CANCER
     Dosage: 5 MG, BID
     Route: 048
     Dates: start: 20130830
  20. MOTILIUM [Concomitant]
     Active Substance: DOMPERIDONE
  21. LYRICA [Concomitant]
     Active Substance: PREGABALIN
  22. XL184 [Suspect]
     Active Substance: CABOZANTINIB
     Dosage: 40 MG, QD
     Route: 048
     Dates: end: 20140923
  23. NEXIUM [Concomitant]
     Active Substance: ESOMEPRAZOLE MAGNESIUM
  24. RAMIPRIL. [Concomitant]
     Active Substance: RAMIPRIL

REACTIONS (1)
  - Anaemia [Recovered/Resolved]

NARRATIVE: CASE EVENT DATE: 20140821
